FAERS Safety Report 10234773 (Version 1)
Quarter: 2014Q2

REPORT INFORMATION
  Report Type: Spontaneous
  Country: US (occurrence: None)
  Receive Date: 20140611
  Receipt Date: 20140611
  Transmission Date: 20141212
  Serious: Yes (Other)
  Sender: FDA-Public Use
  Company Number: None

PATIENT
  Age: 63 Year
  Sex: Female
  Weight: 107.96 kg

DRUGS (5)
  1. RECLAST 5 MG/100ML [Suspect]
     Indication: OSTEOPOROSIS
     Dosage: 5 MG YEARLY INTRAVENOUS
     Route: 042
     Dates: start: 20131108, end: 20131108
  2. ERGOCALCIFEROL [Concomitant]
  3. LORAZEPAM [Concomitant]
  4. ADORA [Concomitant]
  5. MULTIVITAMIN [Concomitant]

REACTIONS (1)
  - Gingival bleeding [None]
